FAERS Safety Report 21473532 (Version 4)
Quarter: 2022Q4

REPORT INFORMATION
  Report Type: Report from Study
  Country: US (occurrence: US)
  Receive Date: 20221018
  Receipt Date: 20221202
  Transmission Date: 20230113
  Serious: Yes (Other)
  Sender: FDA-Public Use
  Company Number: US-NOVARTISTESTPH-NVSC2022US234646

PATIENT
  Sex: Female

DRUGS (1)
  1. PROMACTA [Suspect]
     Active Substance: ELTROMBOPAG OLAMINE
     Indication: Aplastic anaemia
     Dosage: 150 MG, QD
     Route: 048

REACTIONS (6)
  - Renal impairment [Recovered/Resolved]
  - Hypophagia [Recovering/Resolving]
  - Weight decreased [Not Recovered/Not Resolved]
  - Illness [Unknown]
  - Appetite disorder [Recovering/Resolving]
  - Vomiting [Not Recovered/Not Resolved]
